FAERS Safety Report 7040672-9 (Version None)
Quarter: 2010Q4

REPORT INFORMATION
  Report Type: 
  Country: None (occurrence: None)
  Receive Date: 20101013
  Receipt Date: 20101006
  Transmission Date: 20110411
  Serious: Yes (Life-Threatening)
  Sender: FDA-Public Use
  Company Number: GR-AMGEN-QUU444053

PATIENT
  Sex: Male
  Weight: 67 kg

DRUGS (3)
  1. ENBREL [Suspect]
     Indication: ANKYLOSING SPONDYLITIS
     Route: 058
     Dates: start: 20090219, end: 20100301
  2. PONSTAN [Concomitant]
     Dosage: 500MG ONCE DAILY OCCASSIONALLY
     Route: 048
  3. CARVEDILOL [Concomitant]
     Dosage: UNSPECIFIED

REACTIONS (3)
  - ASCITES [None]
  - ILEUS [None]
  - LUNG NEOPLASM MALIGNANT [None]
